FAERS Safety Report 18565131 (Version 4)
Quarter: 2021Q3

REPORT INFORMATION
  Report Type: Report from Study
  Country: US (occurrence: US)
  Receive Date: 20201201
  Receipt Date: 20210716
  Transmission Date: 20211014
  Serious: No
  Sender: FDA-Public Use
  Company Number: NVSC2020US312195

PATIENT
  Sex: Female

DRUGS (6)
  1. KESIMPTA [Suspect]
     Active Substance: OFATUMUMAB
     Dosage: UNK
     Route: 058
  2. KESIMPTA [Suspect]
     Active Substance: OFATUMUMAB
     Indication: MULTIPLE SCLEROSIS
     Dosage: UNK
     Route: 058
  3. KESIMPTA [Suspect]
     Active Substance: OFATUMUMAB
     Dosage: UNK MG
     Route: 065
  4. KESIMPTA [Suspect]
     Active Substance: OFATUMUMAB
     Dosage: 20 MG
     Route: 058
  5. ENPRESSE?28 [Concomitant]
     Indication: PRODUCT USED FOR UNKNOWN INDICATION
     Dosage: UNK
     Route: 065
  6. VITAMIN B12 [Concomitant]
     Active Substance: CYANOCOBALAMIN
     Indication: PRODUCT USED FOR UNKNOWN INDICATION
     Dosage: UNK
     Route: 065

REACTIONS (7)
  - Dizziness [Unknown]
  - Myalgia [Unknown]
  - Pyrexia [Unknown]
  - Alopecia [Unknown]
  - Decreased immune responsiveness [Unknown]
  - Headache [Unknown]
  - Chills [Unknown]
